FAERS Safety Report 21477640 (Version 1)
Quarter: 2022Q4

REPORT INFORMATION
  Report Type: Spontaneous
  Country: US (occurrence: US)
  Receive Date: 20221019
  Receipt Date: 20221019
  Transmission Date: 20230112
  Serious: No
  Sender: FDA-Public Use
  Company Number: US-BRISTOL-MYERS SQUIBB COMPANY-2022-123459

PATIENT
  Age: 82 Year
  Sex: Female

DRUGS (1)
  1. REVLIMID [Suspect]
     Active Substance: LENALIDOMIDE
     Indication: Neoplasm malignant
     Dosage: TAKE 1 CAPSULE BY MOUTH EVERY OTHER DAY ON DAYS 1-21 OF A 28 DAY CYCLE
     Route: 048

REACTIONS (1)
  - Change of bowel habit [Unknown]
